FAERS Safety Report 10098403 (Version 2)
Quarter: 2014Q2

REPORT INFORMATION
  Report Type: Spontaneous
  Country: GB (occurrence: GB)
  Receive Date: 20140423
  Receipt Date: 20140423
  Transmission Date: 20141212
  Serious: Yes (Other)
  Sender: FDA-Public Use
  Company Number: PHFR2013GB006396

PATIENT
  Age: 57 Year
  Sex: Female

DRUGS (3)
  1. CLOZARIL [Suspect]
     Indication: PSYCHOTIC DISORDER
     Dosage: 350 MG, UNK
     Route: 048
     Dates: start: 20130805
  2. AMISULPRIDE [Suspect]
     Dosage: 300 MG, UNK
     Route: 048
     Dates: start: 201310
  3. AMLODIPINE [Concomitant]
     Indication: HYPERTENSION
     Dosage: 5 ML, UNK
     Route: 048

REACTIONS (2)
  - Microcytic anaemia [Recovering/Resolving]
  - Haemoglobin decreased [Recovering/Resolving]
